FAERS Safety Report 9939797 (Version 1)
Quarter: 2014Q1

REPORT INFORMATION
  Report Type: Report from Study
  Country: US (occurrence: US)
  Receive Date: 20140303
  Receipt Date: 20140303
  Transmission Date: 20141002
  Serious: No
  Sender: FDA-Public Use
  Company Number: US-ABBVIE-13P-163-1033405-00

PATIENT
  Age: 46 Year
  Sex: Female
  Weight: 81.72 kg

DRUGS (6)
  1. HUMIRA (ABBOTT) [Suspect]
     Indication: INFLAMMATION
     Dates: start: 20130107
  2. PREDNISONE [Concomitant]
     Indication: INFLAMMATION
  3. ZOLOFT [Concomitant]
     Indication: ANXIETY
  4. ATENOLOL [Concomitant]
     Indication: HYPERTENSION
  5. PLAQUENIL [Concomitant]
     Indication: INFLAMMATION
  6. UNNAMED BIRTH CONTROL MEDICATION [Concomitant]
     Indication: CONTRACEPTION

REACTIONS (1)
  - Off label use [Not Recovered/Not Resolved]
